FAERS Safety Report 17895964 (Version 2)
Quarter: 2020Q2

REPORT INFORMATION
  Report Type: Spontaneous
  Country: US (occurrence: US)
  Receive Date: 20200615
  Receipt Date: 20200630
  Transmission Date: 20200714
  Serious: Yes (Other)
  Sender: FDA-Public Use
  Company Number: US-GLAXOSMITHKLINE-US2020AMR099892

PATIENT
  Sex: Female

DRUGS (1)
  1. ZEJULA [Suspect]
     Active Substance: NIRAPARIB
     Indication: OVARIAN CANCER
     Dosage: 100 MG, QD (AT NIGHT)
     Dates: start: 20200516

REACTIONS (7)
  - Gait disturbance [Unknown]
  - Dizziness [Unknown]
  - Asthenia [Unknown]
  - Malaise [Unknown]
  - Neuropathy peripheral [Unknown]
  - Off label use [Unknown]
  - Feeling drunk [Unknown]
